FAERS Safety Report 7347703-7 (Version None)
Quarter: 2011Q1

REPORT INFORMATION
  Report Type: 
  Country: None (occurrence: None)
  Receive Date: 20110311
  Receipt Date: 20110303
  Transmission Date: 20110831
  Serious: Yes (Hospitalization)
  Sender: FDA-Public Use
  Company Number: B0703481A

PATIENT
  Sex: Female

DRUGS (5)
  1. CORENITEC [Concomitant]
     Route: 065
  2. CORGARD [Concomitant]
     Route: 065
  3. ACETAMINOPHEN [Concomitant]
     Route: 065
  4. ARIXTRA [Suspect]
     Indication: THROMBOSIS PROPHYLAXIS
     Dosage: 2.5MG PER DAY
     Route: 058
     Dates: start: 20110202, end: 20110204
  5. NOCTRAN [Concomitant]
     Route: 065

REACTIONS (1)
  - PANCYTOPENIA [None]
